FAERS Safety Report 6600326-7 (Version None)
Quarter: 2010Q1

REPORT INFORMATION
  Report Type: 
  Country: None (occurrence: None)
  Receive Date: 20100217
  Receipt Date: 20100211
  Transmission Date: 20100710
  Serious: Yes (Other)
  Sender: FDA-Public Use
  Company Number: 2010EU000429

PATIENT
  Age: 57 Year
  Sex: Female
  Weight: 90 kg

DRUGS (6)
  1. PROTOPIC [Suspect]
     Indication: DERMATITIS ATOPIC
     Dosage: TOPICAL
     Route: 061
  2. SERETIDE (FLUITICASONE PROPIONATE) [Concomitant]
  3. SINGULAIR [Concomitant]
  4. PREMARIN [Concomitant]
  5. TOPZOL (TIOCONAZOLE) [Concomitant]
  6. PURICOS (ALLOPURINOL) [Concomitant]

REACTIONS (2)
  - BURNS SECOND DEGREE [None]
  - SKIN BURNING SENSATION [None]
